FAERS Safety Report 19069035 (Version 6)
Quarter: 2021Q3

REPORT INFORMATION
  Report Type: Report from Study
  Country: CA (occurrence: CA)
  Receive Date: 20210329
  Receipt Date: 20210820
  Transmission Date: 20211014
  Serious: Yes (Other)
  Sender: FDA-Public Use
  Company Number: CA-OTSUKA-2021_002872

PATIENT
  Age: 73 Year
  Sex: Female

DRUGS (2)
  1. CEDAZURIDINE AND DECITABINE [Suspect]
     Active Substance: CEDAZURIDINE\DECITABINE
     Indication: MYELODYSPLASTIC SYNDROME
     Dosage: (35 MG DECITABINE AND 100 MG CEDAZURIDINE) QD 1?5 DAYS
     Route: 065
     Dates: start: 20210120
  2. CEDAZURIDINE AND DECITABINE [Suspect]
     Active Substance: CEDAZURIDINE\DECITABINE
     Dosage: (35 MG DECITABINE AND 100 MG CEDAZURIDINE) QD 1?5 DAYS
     Route: 065

REACTIONS (11)
  - Blood count abnormal [Unknown]
  - Skin disorder [Unknown]
  - Neutropenia [Not Recovered/Not Resolved]
  - Ulcer [Unknown]
  - Constipation [Not Recovered/Not Resolved]
  - Asthenia [Unknown]
  - Nausea [Recovered/Resolved]
  - White blood cell count decreased [Unknown]
  - Transfusion [Unknown]
  - Platelet count abnormal [Unknown]
  - Product use issue [Unknown]

NARRATIVE: CASE EVENT DATE: 20210303
